FAERS Safety Report 9155543 (Version 1)
Quarter: 2013Q1

REPORT INFORMATION
  Report Type: Spontaneous
  Country: CA (occurrence: CA)
  Receive Date: 20130311
  Receipt Date: 20130311
  Transmission Date: 20140127
  Serious: Yes (Hospitalization)
  Sender: FDA-Public Use
  Company Number: CA-GLAXOSMITHKLINE-A1014226A

PATIENT
  Age: 27 Year
  Sex: Female

DRUGS (7)
  1. FLOLAN [Suspect]
     Indication: PULMONARY ARTERIAL HYPERTENSION
     Route: 042
     Dates: start: 20070706
  2. FLOLAN DILUENT [Suspect]
     Indication: PULMONARY ARTERIAL HYPERTENSION
     Route: 042
     Dates: start: 20070706
  3. CALCIUM [Concomitant]
  4. VITAMIN D [Concomitant]
  5. CORTISONE [Concomitant]
  6. ALENDRONATE SODIUM [Concomitant]
  7. CELLCEPT [Concomitant]

REACTIONS (2)
  - Device related infection [Not Recovered/Not Resolved]
  - Malaise [Not Recovered/Not Resolved]
